FAERS Safety Report 25617171 (Version 1)
Quarter: 2025Q3

REPORT INFORMATION
  Report Type: Spontaneous
  Country: US (occurrence: US)
  Receive Date: 20250729
  Receipt Date: 20250729
  Transmission Date: 20251021
  Serious: Yes (Hospitalization)
  Sender: AMNEAL
  Company Number: US-AMNEAL-2025-AMRX-02837

PATIENT
  Sex: Female

DRUGS (1)
  1. BACLOFEN [Suspect]
     Active Substance: BACLOFEN
     Indication: Product used for unknown indication
     Dosage: 210 MICROGRAM, DAILY
     Route: 037

REACTIONS (9)
  - Clonus [Unknown]
  - Mydriasis [Unknown]
  - Abdominal distension [Unknown]
  - Flushing [Unknown]
  - Irritability [Unknown]
  - Muscle spasticity [Unknown]
  - Diarrhoea [Unknown]
  - Device dislocation [Unknown]
  - Device issue [Unknown]

NARRATIVE: CASE EVENT DATE: 20180101
